APPROVED DRUG PRODUCT: TESTOSTERONE CYPIONATE
Active Ingredient: TESTOSTERONE CYPIONATE
Strength: 100MG/ML
Dosage Form/Route: INJECTABLE;INJECTION
Application: A211817 | Product #001 | TE Code: AO
Applicant: EUGIA PHARMA SPECIALITIES LTD
Approved: Oct 20, 2023 | RLD: No | RS: No | Type: RX